FAERS Safety Report 5461066-3 (Version None)
Quarter: 2007Q3

REPORT INFORMATION
  Report Type: 
  Country: None (occurrence: None)
  Receive Date: 20070810
  Receipt Date: 20061102
  Transmission Date: 20080115
  Serious: Yes (Life-Threatening)
  Sender: FDA-Public Use
  Company Number: 200615618BWH

PATIENT
  Age: 24 Year
  Sex: Female

DRUGS (1)
  1. TRASYLOL [Suspect]
     Indication: AORTIC VALVE REPAIR
     Dosage: 1 ML, ONCE, INTRAVENOUS
     Route: 042
     Dates: start: 20060912

REACTIONS (4)
  - ANAPHYLACTIC REACTION [None]
  - HYPOTENSION [None]
  - RASH [None]
  - TACHYCARDIA [None]
